FAERS Safety Report 6533551-4 (Version None)
Quarter: 2010Q1

REPORT INFORMATION
  Report Type: 
  Country: None (occurrence: None)
  Receive Date: 20100111
  Receipt Date: 20100106
  Transmission Date: 20100710
  Serious: Yes (Life-Threatening, Hospitalization)
  Sender: FDA-Public Use
  Company Number: FR-WYE-H12906710

PATIENT
  Age: 43 Year
  Sex: Male

DRUGS (12)
  1. CORDARONE [Suspect]
     Indication: DRUG USE FOR UNKNOWN INDICATION
     Route: 048
  2. CORDARONE [Interacting]
     Route: 048
  3. MEXITIL [Interacting]
     Indication: DRUG USE FOR UNKNOWN INDICATION
     Route: 048
     Dates: end: 20090202
  4. SELOZOK [Interacting]
     Indication: DRUG USE FOR UNKNOWN INDICATION
     Route: 048
  5. SELOZOK [Interacting]
     Route: 048
  6. XANAX [Concomitant]
     Route: 065
     Dates: start: 20081124
  7. PREVISCAN [Concomitant]
     Dosage: DOSE ADAPTED ACCORDING TO INR
     Route: 065
  8. LASILIX [Concomitant]
     Route: 065
  9. ALDACTONE [Concomitant]
     Route: 065
  10. MAG 2 [Concomitant]
     Route: 065
  11. MIANSERIN [Interacting]
     Indication: DRUG USE FOR UNKNOWN INDICATION
     Route: 048
     Dates: start: 20081230, end: 20090202
  12. COVERSYL [Concomitant]
     Dosage: 2 MG (2 TABLETS/DAY)
     Route: 065

REACTIONS (3)
  - CARDIAC ARREST [None]
  - DRUG INTERACTION [None]
  - TORSADE DE POINTES [None]
